FAERS Safety Report 25274216 (Version 3)
Quarter: 2025Q2

REPORT INFORMATION
  Report Type: Report from Study
  Country: US (occurrence: US)
  Receive Date: 20250506
  Receipt Date: 20250529
  Transmission Date: 20250717
  Serious: Yes (Hospitalization)
  Sender: PFIZER
  Company Number: US-PFIZER INC-PV202500053310

PATIENT
  Age: 40 Year
  Sex: Male

DRUGS (8)
  1. BRAFTOVI [Suspect]
     Active Substance: ENCORAFENIB
     Indication: Colon cancer
     Dosage: 300 MG ORALLY ONCE DAILY
     Route: 048
     Dates: start: 20250310
  2. BRAFTOVI [Suspect]
     Active Substance: ENCORAFENIB
     Dosage: 300 MG (4 X 75 MG CAPSULES) 1 TIME A DAY
     Route: 048
     Dates: start: 20250410
  3. BRAFTOVI [Suspect]
     Active Substance: ENCORAFENIB
     Dosage: 300 MG ORALLY ONCE DAILY
     Route: 048
     Dates: start: 20250516
  4. CETUXIMAB [Concomitant]
     Active Substance: CETUXIMAB
  5. FLUOROURACIL [Concomitant]
     Active Substance: FLUOROURACIL
  6. LEUCOVORIN [Concomitant]
     Active Substance: LEUCOVORIN\LEUCOVORIN CALCIUM
  7. OXALIPLATIN [Concomitant]
     Active Substance: OXALIPLATIN
  8. ERBITUX [Concomitant]
     Active Substance: CETUXIMAB

REACTIONS (1)
  - Small intestinal obstruction [Recovered/Resolved]
